FAERS Safety Report 5670306-7 (Version None)
Quarter: 2008Q1

REPORT INFORMATION
  Report Type: 
  Country: None (occurrence: None)
  Receive Date: 20080314
  Receipt Date: 20080314
  Transmission Date: 20080703
  Serious: Yes (Other)
  Sender: FDA-Public Use
  Company Number: None

PATIENT
  Age: 33 Year
  Sex: Male
  Weight: 81.6475 kg

DRUGS (2)
  1. FLOXIN OTIC [Suspect]
     Indication: OTITIS MEDIA CHRONIC
     Dosage: 3 DROPS 3X OTHER
     Route: 050
     Dates: start: 20010312, end: 20080311
  2. FLOXIN OTIC [Suspect]
     Indication: TYMPANIC MEMBRANE PERFORATION
     Dosage: 3 DROPS 3X OTHER
     Route: 050
     Dates: start: 20010312, end: 20080311

REACTIONS (6)
  - FATIGUE [None]
  - GASTROINTESTINAL DISORDER [None]
  - HEADACHE [None]
  - MUSCLE CONTRACTIONS INVOLUNTARY [None]
  - NEUROPATHY PERIPHERAL [None]
  - PARAESTHESIA [None]
